FAERS Safety Report 5857588-3 (Version None)
Quarter: 2008Q3

REPORT INFORMATION
  Report Type: 
  Country: None (occurrence: None)
  Receive Date: 20080825
  Receipt Date: 20080825
  Transmission Date: 20090109
  Serious: Yes (Other)
  Sender: FDA-Public Use
  Company Number: None

PATIENT
  Age: 52 Year
  Sex: Male
  Weight: 82.5547 kg

DRUGS (2)
  1. TICLID [Suspect]
     Indication: PROPHYLAXIS
  2. TICLID [Suspect]
     Indication: THROMBOSIS IN DEVICE

REACTIONS (1)
  - DIARRHOEA [None]
